FAERS Safety Report 9046156 (Version 2)
Quarter: 2013Q1

REPORT INFORMATION
  Report Type: Spontaneous
  Country: US (occurrence: US)
  Receive Date: 20130201
  Receipt Date: 20130218
  Transmission Date: 20140127
  Serious: Yes (Death, Hospitalization, Other)
  Sender: FDA-Public Use
  Company Number: PHEH2013US002626

PATIENT
  Age: 56 None
  Sex: Male
  Weight: 93.8 kg

DRUGS (33)
  1. AFINITOR [Suspect]
     Indication: RENAL CELL CARCINOMA
     Dosage: 10 MG, DAILY
     Route: 048
     Dates: start: 201107, end: 20121029
  2. AMBIEN [Concomitant]
     Dosage: 5 MG
  3. SUTENT [Concomitant]
     Dosage: 12.5 MG
     Dates: start: 20121018
  4. BENADRYL /00647601/ [Concomitant]
     Dosage: 25 MG
  5. CITALOPRAM [Concomitant]
     Dosage: 10 MG
  6. DOXEPIN HCL [Concomitant]
     Dosage: 100 MG
  7. OXYCOD [Concomitant]
     Dosage: 10 MG, Q12H
  8. OXYCOD [Concomitant]
     Dosage: 30 MG, Q12H
  9. APAP [Concomitant]
     Dosage: 325 MG
  10. SENNA [Concomitant]
     Dosage: 8.6 MG, UNK
  11. OXYCONTIN [Concomitant]
     Dosage: 40 MG, Q12H
  12. OXYCONTIN [Concomitant]
     Dosage: 10 MG, Q12H
     Route: 048
  13. COLACE [Concomitant]
     Dosage: 100 MG
  14. FLOMAX [Concomitant]
     Dosage: 0.4 MG, EVERY EVENING
     Route: 048
  15. XANAX [Concomitant]
     Dosage: 2 MG, UNK
     Route: 048
  16. XANAX [Concomitant]
     Dosage: 0.5 MG, UNK
     Route: 048
  17. ROXICODONE [Concomitant]
     Indication: PAIN
     Dosage: 1 DF, Q3H
     Route: 048
  18. ROXICODONE [Concomitant]
     Dosage: 1 DF, Q3H
     Route: 048
  19. ROXICODONE [Concomitant]
     Dosage: 1 DF, Q3H
     Route: 048
  20. ROXICODONE [Concomitant]
     Dosage: 1 DF, Q3H
     Route: 048
  21. DOLOPHINE [Concomitant]
     Dosage: 2 DF, 4 TIMES A DAY
     Route: 048
  22. RITALIN [Concomitant]
     Dosage: 2 DF, TID
     Route: 048
  23. PRILOSEC [Concomitant]
     Dosage: 1 DF, QD
     Route: 048
  24. CORTEF [Concomitant]
     Dosage: 10 MG, BID
     Route: 048
  25. TYLENOL [Concomitant]
     Dosage: 1 DF,EVERY NIGHT
     Route: 048
  26. SARNA [Concomitant]
     Indication: PRURITUS
     Route: 061
  27. SYNTHROID [Concomitant]
     Dosage: 1 DF, QD
     Route: 048
  28. FLORINEF [Concomitant]
     Dosage: 2 DF IN THE MORNING
  29. FISH OIL [Concomitant]
     Dosage: 1 DF, BID
     Route: 048
  30. ZOCOR [Concomitant]
     Dosage: 1 DF,DAILY
     Route: 048
  31. ASPIRIN [Concomitant]
     Dosage: 1 DF, EVERY MORNING
  32. FERROUS SULPHATE [Concomitant]
     Dosage: 1 DF, EVERY MORNING
     Route: 048
  33. CHOLECALCIFEROL [Concomitant]
     Dosage: 1 DF, EVERY MORNING

REACTIONS (24)
  - Cardiac arrest [Fatal]
  - Pulseless electrical activity [Fatal]
  - Dyspnoea exertional [Fatal]
  - Haemodynamic instability [Unknown]
  - Adrenal mass [Unknown]
  - Adrenal insufficiency [Unknown]
  - Renal cell carcinoma [Unknown]
  - Malignant neoplasm progression [Unknown]
  - Pneumonia [Unknown]
  - Bronchial obstruction [Unknown]
  - Pleural effusion [Unknown]
  - Renal failure acute [Unknown]
  - Sputum abnormal [Unknown]
  - Hypophagia [Unknown]
  - Rhinorrhoea [Unknown]
  - Abdominal distension [Unknown]
  - Abdominal discomfort [Unknown]
  - Agitation [Unknown]
  - Cough [Unknown]
  - Pyrexia [Unknown]
  - Hyperhidrosis [Unknown]
  - Vomiting [Unknown]
  - Nausea [Unknown]
  - Abdominal pain [Unknown]
